FAERS Safety Report 9450854 (Version 1)
Quarter: 2013Q3

REPORT INFORMATION
  Report Type: Spontaneous
  Country: ES (occurrence: None)
  Receive Date: 20130807
  Receipt Date: 20130807
  Transmission Date: 20140515
  Serious: Yes (Other)
  Sender: FDA-Public Use
  Company Number: AUR-APL-2013-06291

PATIENT
  Age: 87 Year
  Sex: Female

DRUGS (2)
  1. SERTRALINE [Suspect]
     Indication: DEPRESSION
  2. ALPRAZOLAM [Concomitant]

REACTIONS (3)
  - Supraventricular tachycardia [None]
  - Atrial fibrillation [None]
  - Chest discomfort [None]
